FAERS Safety Report 7610144-9 (Version None)
Quarter: 2011Q3

REPORT INFORMATION
  Report Type: 
  Country: None (occurrence: None)
  Receive Date: 20110715
  Receipt Date: 20110706
  Transmission Date: 20111222
  Serious: No
  Sender: FDA-Public Use
  Company Number: US-BIOGENIDEC-2011BI025118

PATIENT
  Sex: Female

DRUGS (2)
  1. TYSABRI [Suspect]
     Indication: MULTIPLE SCLEROSIS
     Route: 042
  2. TYSABRI [Suspect]
     Route: 042
     Dates: start: 20070717, end: 20090624

REACTIONS (7)
  - ASTHENIA [None]
  - LYMPHADENOPATHY [None]
  - LYMPHADENECTOMY [None]
  - PAIN [None]
  - COORDINATION ABNORMAL [None]
  - LOSS OF CONTROL OF LEGS [None]
  - FALL [None]
